FAERS Safety Report 8191041-X (Version None)
Quarter: 2012Q1

REPORT INFORMATION
  Report Type: 
  Country: None (occurrence: None)
  Receive Date: 20120307
  Receipt Date: 20120305
  Transmission Date: 20120608
  Serious: No
  Sender: FDA-Public Use
  Company Number: US-BAYER-2012-022263

PATIENT
  Age: 60 Year
  Sex: Female

DRUGS (1)
  1. BETASERON [Suspect]
     Indication: MULTIPLE SCLEROSIS
     Dosage: 0.3 MG, QOD
     Route: 058
     Dates: start: 20090701

REACTIONS (4)
  - INJECTION SITE HAEMORRHAGE [None]
  - DYSPHONIA [None]
  - INJECTION SITE RASH [None]
  - PARANASAL SINUS HYPERSECRETION [None]
